FAERS Safety Report 20706542 (Version 1)
Quarter: 2022Q2

REPORT INFORMATION
  Report Type: Spontaneous
  Country: US (occurrence: US)
  Receive Date: 20220413
  Receipt Date: 20220413
  Transmission Date: 20220721
  Serious: No
  Sender: FDA-Public Use
  Company Number: US-SA-SAC20220412001722

PATIENT
  Age: 53 Year
  Sex: Female

DRUGS (2)
  1. DUPIXENT [Suspect]
     Active Substance: DUPILUMAB
     Indication: Dermatitis allergic
     Dosage: 2 DF, TOTAL, 2 PENS
     Route: 058
     Dates: start: 202203
  2. DUPIXENT [Suspect]
     Active Substance: DUPILUMAB
     Dosage: INJECT 1 PEN ON DAY I5, THEN 1 PEN (300MG) EVERY OTHER WEEK THEREAFTER
     Route: 058

REACTIONS (1)
  - Drug ineffective for unapproved indication [Unknown]
